FAERS Safety Report 6531108-2 (Version None)
Quarter: 2010Q1

REPORT INFORMATION
  Report Type: 
  Country: None (occurrence: None)
  Receive Date: 20100108
  Receipt Date: 20100104
  Transmission Date: 20100710
  Serious: Yes (Other)
  Sender: FDA-Public Use
  Company Number: US-TEVA-219697USA

PATIENT
  Age: 18 Year

DRUGS (2)
  1. LEVETIRACETAM TABLETS, 250 MG, 500 MG, 750 MG AND 1000 MG [Suspect]
  2. VALPROATE SODIUM [Suspect]

REACTIONS (2)
  - CONVULSION [None]
  - IRON OVERLOAD [None]
